FAERS Safety Report 20593599 (Version 1)
Quarter: 2022Q1

REPORT INFORMATION
  Report Type: Spontaneous
  Country: IT (occurrence: IT)
  Receive Date: 20220315
  Receipt Date: 20220315
  Transmission Date: 20220423
  Serious: Yes (Other)
  Sender: FDA-Public Use
  Company Number: IT-BoehringerIngelheim-2022-BI-158896

PATIENT
  Age: 94 Year
  Sex: Female

DRUGS (2)
  1. DABIGATRAN [Suspect]
     Active Substance: DABIGATRAN
     Indication: Atrial fibrillation
     Route: 048
  2. VERAPAMIL [Suspect]
     Active Substance: VERAPAMIL HYDROCHLORIDE
     Indication: Product used for unknown indication

REACTIONS (7)
  - Anuria [Unknown]
  - Toxicity to various agents [Unknown]
  - Presyncope [Unknown]
  - Asthenia [Unknown]
  - Sopor [Unknown]
  - Anaemia [Unknown]
  - Drug interaction [Unknown]
